FAERS Safety Report 8811161 (Version 7)
Quarter: 2013Q2

REPORT INFORMATION
  Report Type: Spontaneous
  Country: US (occurrence: US)
  Receive Date: 20120927
  Receipt Date: 20130607
  Transmission Date: 20140414
  Serious: Yes (Hospitalization, Disabling, Other)
  Sender: FDA-Public Use
  Company Number: US-009507513-1209USA008994

PATIENT
  Sex: Female

DRUGS (2)
  1. FOSAMAX [Suspect]
     Indication: OSTEOPENIA
     Dosage: 70 MG, QW
     Route: 048
     Dates: start: 20070623
  2. ALENDRONATE SODIUM [Suspect]
     Route: 048

REACTIONS (28)
  - Femur fracture [Not Recovered/Not Resolved]
  - Open reduction of fracture [Not Recovered/Not Resolved]
  - Iron deficiency anaemia [Unknown]
  - Pubis fracture [Unknown]
  - Fractured sacrum [Unknown]
  - Pubis fracture [Unknown]
  - Coagulopathy [Recovered/Resolved]
  - Vitamin D deficiency [Unknown]
  - Muscular weakness [Unknown]
  - Cardiac failure congestive [Unknown]
  - Head injury [Unknown]
  - Muscular weakness [Unknown]
  - Head injury [Unknown]
  - Tooth extraction [Unknown]
  - Oral surgery [Unknown]
  - Arthritis [Not Recovered/Not Resolved]
  - Spinal compression fracture [Unknown]
  - Fall [Unknown]
  - Atrial fibrillation [Not Recovered/Not Resolved]
  - Obesity [Unknown]
  - Arrhythmia [Unknown]
  - Hypothalamo-pituitary disorder [Unknown]
  - Arteriosclerosis [Unknown]
  - Fall [Unknown]
  - Intervertebral disc degeneration [Unknown]
  - Arthralgia [Not Recovered/Not Resolved]
  - Pain in extremity [Unknown]
  - Musculoskeletal pain [Unknown]
